FAERS Safety Report 13081980 (Version 1)
Quarter: 2017Q1

REPORT INFORMATION
  Report Type: Spontaneous
  Country: GB (occurrence: GB)
  Receive Date: 20170103
  Receipt Date: 20170103
  Transmission Date: 20170428
  Serious: Yes (Other)
  Sender: FDA-Public Use
  Company Number: GB-PFIZER INC-2016601702

PATIENT
  Age: 24 Year
  Sex: Female

DRUGS (11)
  1. SALBUTAMOL [Concomitant]
     Active Substance: ALBUTEROL
     Dosage: UNK (INHALER)
  2. SALBUTAMOL [Concomitant]
     Active Substance: ALBUTEROL
     Dosage: UNK (INFUSION (5 G/MIN))
     Route: 041
  3. PHENOPERIDINE [Concomitant]
     Dosage: UNK
  4. HYDROCORTISONE SODIUM SUCCINATE [Suspect]
     Active Substance: HYDROCORTISONE SODIUM SUCCINATE
     Indication: STATUS ASTHMATICUS
     Dosage: UNK (UP TO 3 G/D)
     Route: 042
  5. PANCURONIUM [Concomitant]
     Active Substance: PANCURONIUM
     Dosage: UNK
  6. AMINOPHYLLINE. [Concomitant]
     Active Substance: AMINOPHYLLINE
     Dosage: UNK
     Route: 042
  7. PREDNISOLONE. [Concomitant]
     Active Substance: PREDNISOLONE
     Dosage: UNK
     Route: 048
  8. METOCLOPRAMIDE. [Concomitant]
     Active Substance: METOCLOPRAMIDE
     Dosage: UNK
  9. PROMETHAZINE [Concomitant]
     Active Substance: PROMETHAZINE\PROMETHAZINE HYDROCHLORIDE
     Dosage: UNK
  10. AMPICILLIN [Concomitant]
     Active Substance: AMPICILLIN
     Dosage: UNK
  11. BROMID [Concomitant]
     Dosage: UNK

REACTIONS (3)
  - Respiratory muscle weakness [Unknown]
  - Myopathy [Unknown]
  - Muscular weakness [Unknown]
